FAERS Safety Report 11202832 (Version 1)
Quarter: 2015Q2

REPORT INFORMATION
  Report Type: Spontaneous
  Country: US (occurrence: None)
  Receive Date: 20150608
  Receipt Date: 20150608
  Transmission Date: 20150821
  Serious: No
  Sender: FDA-Public Use
  Company Number: 2015TUS002106

PATIENT
  Age: 72 Year
  Sex: Male
  Weight: 86.2 kg

DRUGS (7)
  1. BRINTELLIX [Suspect]
     Active Substance: VORTIOXETINE HYDROBROMIDE
     Indication: ANXIETY
     Dosage: 10 MG SAMPLES, QD, ORAL
     Route: 048
     Dates: start: 201408, end: 201408
  2. CLONIDINE. [Concomitant]
     Active Substance: CLONIDINE
  3. BRINTELLIX [Suspect]
     Active Substance: VORTIOXETINE HYDROBROMIDE
     Indication: DEPRESSION
     Dosage: 10 MG SAMPLES, QD, ORAL
     Route: 048
     Dates: start: 201408, end: 201408
  4. BYSTOLIC [Concomitant]
     Active Substance: NEBIVOLOL HYDROCHLORIDE
  5. REMERON [Concomitant]
     Active Substance: MIRTAZAPINE
  6. COLCRYS (CHOLCHICINE) [Concomitant]
  7. ALLOPURINOL. [Concomitant]
     Active Substance: ALLOPURINOL

REACTIONS (4)
  - Headache [None]
  - Feeling abnormal [None]
  - Malaise [None]
  - Off label use [None]

NARRATIVE: CASE EVENT DATE: 201408
